FAERS Safety Report 9237067 (Version 1)
Quarter: 2013Q2

REPORT INFORMATION
  Report Type: Spontaneous
  Country: IT (occurrence: IT)
  Receive Date: 20130417
  Receipt Date: 20130417
  Transmission Date: 20140414
  Serious: Yes (Hospitalization, Other)
  Sender: FDA-Public Use
  Company Number: IT-009507513-1304ITA005586

PATIENT
  Age: 56 Year
  Sex: Male

DRUGS (6)
  1. REMERON [Suspect]
     Indication: INTENTIONAL SELF-INJURY
     Dosage: 60 MG, QD
     Route: 048
  2. REMERON [Suspect]
     Dosage: 20 DF,
     Route: 048
     Dates: start: 20130404, end: 20130404
  3. RIVOTRIL [Suspect]
     Indication: INTENTIONAL SELF-INJURY
     Dosage: UNK, PRN
     Route: 048
  4. RIVOTRIL [Suspect]
     Dosage: 20 DF, ONCE
     Route: 048
     Dates: start: 20130404, end: 20130404
  5. LAROXYL [Concomitant]
     Dosage: 30 ORAL DROPS, QD, STRENGTH: 40 MG/ML,FORMULATION: SOLUTION FOR ORAL DROPS.
     Route: 048
  6. MESALAMINE [Concomitant]
     Indication: CROHN^S DISEASE
     Dosage: UNK

REACTIONS (4)
  - Intentional self-injury [Recovered/Resolved]
  - Sopor [Recovered/Resolved]
  - Drug abuse [Recovered/Resolved]
  - Gastric operation [Recovered/Resolved]
